FAERS Safety Report 6224857-7 (Version None)
Quarter: 2009Q2

REPORT INFORMATION
  Report Type: 
  Country: None (occurrence: None)
  Receive Date: 20090612
  Receipt Date: 20090330
  Transmission Date: 20091009
  Serious: No
  Sender: FDA-Public Use
  Company Number: US-ABBOTT-09P-163-0565577-00

PATIENT
  Sex: Female
  Weight: 57.658 kg

DRUGS (5)
  1. HUMIRA [Suspect]
     Indication: RHEUMATOID ARTHRITIS
     Route: 058
     Dates: start: 20060101, end: 20090101
  2. HUMIRA [Suspect]
  3. HUMIRA [Suspect]
     Indication: RHEUMATOID ARTHRITIS
     Dates: start: 20090101
  4. METHOTREXATE [Concomitant]
     Indication: RHEUMATOID ARTHRITIS
     Dosage: 2.5 MG, 1 IN 1 WEEKS
     Route: 048
  5. FOLIC ACID [Concomitant]
     Indication: MEDICAL DIET
     Route: 048

REACTIONS (1)
  - INJECTION SITE IRRITATION [None]
